FAERS Safety Report 10163914 (Version 2)
Quarter: 2014Q2

REPORT INFORMATION
  Report Type: Report from Study
  Country: US (occurrence: US)
  Receive Date: 20140510
  Receipt Date: 20140510
  Transmission Date: 20141212
  Serious: Yes (Death, Other)
  Sender: FDA-Public Use
  Company Number: US-ROCHE-698560

PATIENT
  Sex: 0

DRUGS (3)
  1. ERLOTINIB [Suspect]
     Indication: NON-SMALL CELL LUNG CANCER
     Dosage: ON DAY 1 -21
     Route: 048
  2. BEVACIZUMAB [Suspect]
     Indication: NON-SMALL CELL LUNG CANCER
     Dosage: ON DAY ONE.
     Route: 042
  3. IMO-2055 [Suspect]
     Indication: NON-SMALL CELL LUNG CANCER
     Dosage: DOSE ADMINISTERED AS 0.08TO 0.48 MG/KG/W ON DAYS 1,8 AND 15 OF A THREE WEEK CYCLE.
     Route: 058

REACTIONS (14)
  - Death [Fatal]
  - Decreased appetite [Unknown]
  - Dehydration [Unknown]
  - Dermatitis acneiform [Unknown]
  - Fatigue [Unknown]
  - Diarrhoea [Unknown]
  - Anaemia [Unknown]
  - Dyspnoea [Unknown]
  - Cerebral haemorrhage [Unknown]
  - Arterial thrombosis [Unknown]
  - Deep vein thrombosis [Unknown]
  - Blood creatinine increased [Unknown]
  - Metabolic acidosis [Unknown]
  - Hypotension [Unknown]
